FAERS Safety Report 7630815-8 (Version None)
Quarter: 2011Q3

REPORT INFORMATION
  Report Type: 
  Country: None (occurrence: None)
  Receive Date: 20110723
  Receipt Date: 20110722
  Transmission Date: 20111222
  Serious: Yes (Hospitalization, Other)
  Sender: FDA-Public Use
  Company Number: US-ABBOTT-11P-163-0839328-00

PATIENT
  Sex: Male

DRUGS (7)
  1. MOBIC [Concomitant]
     Indication: RHEUMATOID ARTHRITIS
  2. VITAMIN D [Concomitant]
     Indication: BONE DISORDER
     Dosage: 1 IN 1 WEEK, ONE ON SATURDAY ONLY
  3. HUMIRA [Suspect]
     Indication: RHEUMATOID ARTHRITIS
     Route: 058
     Dates: start: 20050101, end: 20100801
  4. METHOTREXATE [Concomitant]
     Indication: RHEUMATOID ARTHRITIS
     Dosage: 1 IN 1 WEEK, 8 TABS ON SATURDAY ONLY
  5. PREDNISONE [Concomitant]
     Indication: RHEUMATOID ARTHRITIS
  6. SIMVASTATIN [Concomitant]
     Indication: BLOOD CHOLESTEROL INCREASED
  7. FISH OIL [Concomitant]
     Indication: BLOOD CHOLESTEROL INCREASED

REACTIONS (3)
  - ARTHRALGIA [None]
  - GAIT DISTURBANCE [None]
  - OSTEOARTHRITIS [None]
